FAERS Safety Report 4663294-3 (Version None)
Quarter: 2005Q2

REPORT INFORMATION
  Report Type: 
  Country: None (occurrence: None)
  Receive Date: 20050513
  Receipt Date: 20050502
  Transmission Date: 20051028
  Serious: Yes (Hospitalization, Other)
  Sender: FDA-Public Use
  Company Number: 2005041334

PATIENT
  Age: 43 Year
  Sex: Female
  Weight: 54.5 kg

DRUGS (10)
  1. AZULFIDINE EN-TABS [Suspect]
     Indication: RHEUMATOID ARTHRITIS
     Dosage: 1 GRAM (500 MG, 2 IN 1 D), ORAL
     Route: 048
     Dates: start: 20050209, end: 20050221
  2. ENTERONON R (BIFIDOBACTERIUM BIFIDUM, LACTOBACILLUS ACIDOPHILUS, LACTO [Concomitant]
  3. RANITIDINE HYDROCHLORIDE [Concomitant]
  4. CEFDINIR (CEFDINIR) [Concomitant]
  5. FAMOTIDINE [Concomitant]
  6. LAFUTINIDE (LAFUTIDINE) [Concomitant]
  7. PHELLOBERIN A (BERBERINE HYDROCHLORIDE, CARMELLOSE SODIUM, CLIOQUINOL) [Concomitant]
  8. TIQUIZIUM BROMIDE (TIQUIZIUM BROMIDE) [Concomitant]
  9. LOPERAMIDE HYDROCHLORIDE [Concomitant]
  10. VALSARTAN [Concomitant]

REACTIONS (1)
  - INFECTIOUS MONONUCLEOSIS [None]
